FAERS Safety Report 6750307-8 (Version None)
Quarter: 2010Q2

REPORT INFORMATION
  Report Type: 
  Country: None (occurrence: None)
  Receive Date: 20100601
  Receipt Date: 20100521
  Transmission Date: 20101027
  Serious: Yes (Other)
  Sender: FDA-Public Use
  Company Number: US-JNJFOC-20100509301

PATIENT
  Sex: Female

DRUGS (9)
  1. SIMPONI [Suspect]
     Indication: PSORIATIC ARTHROPATHY
     Route: 058
  2. PROCARDIA [Concomitant]
     Indication: HYPERTENSION
  3. PLAVIX [Concomitant]
  4. LIPITOR [Concomitant]
  5. CELEXA [Concomitant]
  6. SYNTHROID [Concomitant]
  7. SINGULAIR [Concomitant]
  8. ZYRTEC [Concomitant]
  9. ALBUTEROL [Concomitant]

REACTIONS (1)
  - PARKINSONISM [None]
